FAERS Safety Report 6754110-4 (Version None)
Quarter: 2010Q2

REPORT INFORMATION
  Report Type: 
  Country: None (occurrence: None)
  Receive Date: 20100601
  Receipt Date: 20100524
  Transmission Date: 20101027
  Serious: Yes (Hospitalization)
  Sender: FDA-Public Use
  Company Number: 2010AL003059

PATIENT
  Age: 63 Year
  Sex: Female

DRUGS (3)
  1. EPIRUBICIN HYDROCHLORIDE [Suspect]
     Indication: BREAST CANCER
     Dosage: 90 MG/M**2; IV
     Route: 042
  2. FLUOROURACIL [Concomitant]
  3. CYCLOPHOSPHAMIDE [Concomitant]

REACTIONS (3)
  - INFUSION SITE EXTRAVASATION [None]
  - INFUSION SITE NECROSIS [None]
  - INFUSION SITE ULCER [None]
